FAERS Safety Report 9059799 (Version 1)
Quarter: 2013Q1

REPORT INFORMATION
  Report Type: Spontaneous
  Country: US (occurrence: None)
  Receive Date: 20130206
  Receipt Date: 20130206
  Transmission Date: 20140127
  Serious: Yes (Other)
  Sender: FDA-Public Use
  Company Number: None

PATIENT
  Age: 42 Year
  Sex: Male
  Weight: 111.13 kg

DRUGS (3)
  1. VIVITROL [Suspect]
     Indication: DRUG DEPENDENCE
     Dosage: ONE SHOT
     Route: 042
     Dates: start: 20120216, end: 20120221
  2. NORCO [Suspect]
     Indication: ORAL PAIN
     Dosage: ONE MABY TWO PILLS, THAT DAY
  3. NORCO [Suspect]
     Indication: DEPENDENCE
     Dosage: ONE MABY TWO PILLS, THAT DAY

REACTIONS (16)
  - Infection [None]
  - Insomnia [None]
  - Aphagia [None]
  - Dysphagia [None]
  - Pain [None]
  - Fatigue [None]
  - Malnutrition [None]
  - Crying [None]
  - Partner stress [None]
  - Mental disorder [None]
  - Suicidal ideation [None]
  - Paranoia [None]
  - Aggression [None]
  - Legal problem [None]
  - Impaired driving ability [None]
  - Impaired work ability [None]
